FAERS Safety Report 7272294-9 (Version None)
Quarter: 2011Q1

REPORT INFORMATION
  Report Type: 
  Country: None (occurrence: None)
  Receive Date: 20110203
  Receipt Date: 20110126
  Transmission Date: 20110831
  Serious: Yes (Other)
  Sender: FDA-Public Use
  Company Number: PHHY2011TR07012

PATIENT
  Age: 26 Year
  Sex: Female

DRUGS (3)
  1. TEGRETOL [Suspect]
     Indication: EPILEPSY
     Dosage: 400 MG, BID
  2. CLOMIPHENE CITRATE [Concomitant]
  3. OVITRELLE [Concomitant]

REACTIONS (3)
  - POLYCYSTIC OVARIES [None]
  - UTERINE LEIOMYOMA [None]
  - DRUG EXPOSURE DURING PREGNANCY [None]
